FAERS Safety Report 25647586 (Version 1)
Quarter: 2025Q3

REPORT INFORMATION
  Report Type: Report from Study
  Country: US (occurrence: US)
  Receive Date: 20250806
  Receipt Date: 20250806
  Transmission Date: 20251021
  Serious: Yes (Other)
  Sender: UCB
  Company Number: US-UCBSA-2025047631

PATIENT
  Age: 35 Year
  Sex: Female
  Weight: 56.2 kg

DRUGS (1)
  1. FINTEPLA [Suspect]
     Active Substance: FENFLURAMINE
     Indication: Lennox-Gastaut syndrome
     Dates: start: 20240617

REACTIONS (1)
  - Mitral valve incompetence [Unknown]

NARRATIVE: CASE EVENT DATE: 20250723
